FAERS Safety Report 7959983-5 (Version None)
Quarter: 2011Q4

REPORT INFORMATION
  Report Type: 
  Country: None (occurrence: None)
  Receive Date: 20111206
  Receipt Date: 20111122
  Transmission Date: 20120403
  Serious: Yes (Disabling)
  Sender: FDA-Public Use
  Company Number: PHFR2011GB05793

PATIENT
  Sex: Female
  Weight: 69 kg

DRUGS (7)
  1. ATORVASTATIN [Concomitant]
     Indication: BLOOD CHOLESTEROL INCREASED
     Dosage: 20 MG
  2. EXELON [Suspect]
     Indication: DEMENTIA ALZHEIMER'S TYPE
     Dosage: 9.5 MG
     Route: 062
     Dates: start: 20101108
  3. OMEPRAZOLE [Concomitant]
     Indication: GASTRITIS
     Dosage: 20 MG
  4. FYBOGEL [Concomitant]
     Indication: CONSTIPATION
  5. CLOPIDOGREL [Concomitant]
     Indication: CEREBROVASCULAR ACCIDENT
     Dosage: 75 MG
  6. CYANOCOBALAMIN [Concomitant]
     Indication: VITAMIN B12 DECREASED
     Dosage: 50 MG
  7. LEVOTHYROXINE SODIUM [Concomitant]
     Indication: THYROID DISORDER
     Dosage: 150 MG

REACTIONS (3)
  - ERYTHEMA [None]
  - RASH PRURITIC [None]
  - SKIN IRRITATION [None]
